FAERS Safety Report 20234376 (Version 1)
Quarter: 2021Q4

REPORT INFORMATION
  Report Type: Spontaneous
  Country: US (occurrence: US)
  Receive Date: 20211227
  Receipt Date: 20211227
  Transmission Date: 20220303
  Serious: No
  Sender: FDA-Public Use
  Company Number: US-FOUNDATIONCONSUMERHC-2021-US-022987

PATIENT
  Age: 22 Year
  Sex: Female

DRUGS (1)
  1. PLAN B ONE-STEP [Suspect]
     Active Substance: LEVONORGESTREL
     Indication: Post coital contraception
     Dosage: 1.5 MG
     Route: 048
     Dates: start: 20211016, end: 20211016

REACTIONS (4)
  - Dizziness [Unknown]
  - Abdominal pain upper [Unknown]
  - Nausea [Unknown]
  - Diarrhoea [Unknown]

NARRATIVE: CASE EVENT DATE: 20211016
